FAERS Safety Report 10090319 (Version 1)
Quarter: 2014Q2

REPORT INFORMATION
  Report Type: Spontaneous
  Country: US (occurrence: US)
  Receive Date: 20140421
  Receipt Date: 20140421
  Transmission Date: 20141212
  Serious: Yes (Hospitalization, Other)
  Sender: FDA-Public Use
  Company Number: US-BAYER-2014-056535

PATIENT
  Age: 30 Year
  Sex: Female
  Weight: 107.3 kg

DRUGS (4)
  1. YAZ [Suspect]
  2. BISACODYL [Concomitant]
  3. COLACE [Concomitant]
  4. PEPCID [Concomitant]

REACTIONS (4)
  - Cerebral venous thrombosis [None]
  - Thalamic infarction [None]
  - Thalamus haemorrhage [None]
  - Cerebrovascular accident [None]
